FAERS Safety Report 18049635 (Version 3)
Quarter: 2020Q3

REPORT INFORMATION
  Report Type: Spontaneous
  Country: US (occurrence: US)
  Receive Date: 20200721
  Receipt Date: 20200810
  Transmission Date: 20201103
  Serious: No
  Sender: FDA-Public Use
  Company Number: US-GLAXOSMITHKLINE-US2020AMR132182

PATIENT
  Sex: Female

DRUGS (2)
  1. ZEJULA [Suspect]
     Active Substance: NIRAPARIB
     Dosage: 200 MG, QD
  2. ZEJULA [Suspect]
     Active Substance: NIRAPARIB
     Indication: FALLOPIAN TUBE CANCER
     Dosage: 300 MG, QD
     Route: 048
     Dates: start: 20200602

REACTIONS (8)
  - Nausea [Unknown]
  - Asthenia [Unknown]
  - Platelet count decreased [Unknown]
  - Headache [Unknown]
  - White blood cell count decreased [Unknown]
  - Positron emission tomogram abnormal [Unknown]
  - Blood pressure increased [Unknown]
  - Red blood cell count decreased [Unknown]
